FAERS Safety Report 5099247-3 (Version None)
Quarter: 2006Q3

REPORT INFORMATION
  Report Type: 
  Country: None (occurrence: None)
  Receive Date: 20060731
  Receipt Date: 20060425
  Transmission Date: 20061208
  Serious: Yes (Other)
  Sender: FDA-Public Use
  Company Number: US-2006-009872

PATIENT
  Age: 62 Year
  Sex: Female
  Weight: 77 kg

DRUGS (1)
  1. MAGNEVIST [Suspect]
     Indication: NUCLEAR MAGNETIC RESONANCE IMAGING BRAIN
     Dosage: 13 ML, 1 DOSE, INTRAVENOUS
     Route: 042
     Dates: start: 20060424, end: 20060424

REACTIONS (11)
  - CHEST DISCOMFORT [None]
  - DYSPNOEA [None]
  - ERYTHEMA [None]
  - FATIGUE [None]
  - FEELING HOT [None]
  - HEART RATE DECREASED [None]
  - HYPOTENSION [None]
  - NASAL CONGESTION [None]
  - NAUSEA [None]
  - SNEEZING [None]
  - SYNCOPE [None]
